FAERS Safety Report 17502084 (Version 1)
Quarter: 2020Q1

REPORT INFORMATION
  Report Type: Spontaneous
  Country: US (occurrence: US)
  Receive Date: 20200305
  Receipt Date: 20200305
  Transmission Date: 20200409
  Serious: No
  Sender: FDA-Public Use
  Company Number: US-KYOWAKIRIN-2020BKK003070

PATIENT

DRUGS (2)
  1. CRYSVITA [Suspect]
     Active Substance: BUROSUMAB-TWZA
     Indication: HEREDITARY HYPOPHOSPHATAEMIC RICKETS
     Dosage: TWO INJECTIONS, EACH IS 1.5 ML FOR A TOTAL OF 3.0 ML
     Route: 065
     Dates: start: 20200225
  2. CRYSVITA [Suspect]
     Active Substance: BUROSUMAB-TWZA
     Dosage: TWO INJECTIONS, EACH IS 1.75 ML FOR A TOTAL OF 3.5 ML
     Route: 065

REACTIONS (1)
  - Wrong technique in product usage process [Recovered/Resolved]
